FAERS Safety Report 24714088 (Version 1)
Quarter: 2024Q4

REPORT INFORMATION
  Report Type: Spontaneous
  Country: US (occurrence: US)
  Receive Date: 20241209
  Receipt Date: 20241209
  Transmission Date: 20250114
  Serious: No
  Sender: REGENERON
  Company Number: US-REGENERON PHARMACEUTICALS, INC.-2024-117196

PATIENT
  Age: 81 Year
  Sex: Male

DRUGS (10)
  1. EYLEA [Suspect]
     Active Substance: AFLIBERCEPT
     Indication: Retinal vein occlusion
     Dosage: UNK; RIGHT EYE; FORMULATION: UNKNOWN
     Dates: start: 20221214, end: 20221214
  2. EYLEA [Suspect]
     Active Substance: AFLIBERCEPT
     Dosage: UNK; RIGHT EYE; FORMULATION: UNKNOWN (2ND SHOT)
     Dates: start: 20230118, end: 20230118
  3. EYLEA [Suspect]
     Active Substance: AFLIBERCEPT
     Dosage: UNK; RIGHT EYE; FORMULATION: UNKNOWN (3RD SHOT)
     Dates: start: 20230222, end: 20230222
  4. EYLEA [Suspect]
     Active Substance: AFLIBERCEPT
     Dosage: UNK; RIGHT EYE; FORMULATION: UNKNOWN (4TH SHOT)
     Dates: start: 20230405, end: 20230405
  5. EYLEA [Suspect]
     Active Substance: AFLIBERCEPT
     Dosage: UNK; RIGHT EYE; FORMULATION: UNKNOWN (5TH SHOT)
     Dates: start: 20230531, end: 20230531
  6. EYLEA [Suspect]
     Active Substance: AFLIBERCEPT
     Dosage: UNK; RIGHT EYE; FORMULATION: UNKNOWN (6TH SHOT)
     Dates: start: 20230809, end: 20230809
  7. EYLEA [Suspect]
     Active Substance: AFLIBERCEPT
     Dosage: UNK; RIGHT EYE; FORMULATION: UNKNOWN (7TH SHOT)
     Dates: start: 20231101, end: 20231101
  8. SYSTANE COMPLETE [Concomitant]
     Active Substance: PROPYLENE GLYCOL
     Indication: Product used for unknown indication
     Dosage: SYSTANE COMPLETE PF
  9. RESTASIS [Concomitant]
     Active Substance: CYCLOSPORINE
     Indication: Product used for unknown indication
  10. LATANOPROST [Concomitant]
     Active Substance: LATANOPROST
     Indication: Ocular discomfort

REACTIONS (4)
  - Visual impairment [Unknown]
  - Eye irritation [Unknown]
  - Vitreous floaters [Unknown]
  - Drug effect less than expected [Unknown]
